FAERS Safety Report 24019650 (Version 1)
Quarter: 2024Q2

REPORT INFORMATION
  Report Type: Spontaneous
  Country: CO (occurrence: CO)
  Receive Date: 20240627
  Receipt Date: 20240627
  Transmission Date: 20240716
  Serious: Yes (Hospitalization, Other)
  Sender: FDA-Public Use
  Company Number: CO-CELLTRION INC.-2024CO015238

PATIENT

DRUGS (1)
  1. INFLIXIMAB [Suspect]
     Active Substance: INFLIXIMAB
     Indication: Spondylitis
     Dosage: 120 MG, EVERY 15 DAYS
     Route: 058
     Dates: start: 2024

REACTIONS (3)
  - Small fibre neuropathy [Not Recovered/Not Resolved]
  - Hepatitis acute [Recovering/Resolving]
  - Intentional product use issue [Unknown]
